FAERS Safety Report 5241051-7 (Version None)
Quarter: 2007Q1

REPORT INFORMATION
  Report Type: 
  Country: None (occurrence: None)
  Receive Date: 20070214
  Receipt Date: 20070214
  Transmission Date: 20070707
  Serious: Yes (Life-Threatening, Hospitalization, Other)
  Sender: FDA-Public Use
  Company Number: None

PATIENT
  Age: 55 Year
  Sex: Male
  Weight: 74.6 kg

DRUGS (13)
  1. LEVOFLOXACIN [Suspect]
     Indication: URINARY TRACT INFECTION
     Dosage: 250 MG INJ Q DAY
     Dates: start: 20061103, end: 20061105
  2. ALOH/MG04/SIMETHICONE [Concomitant]
  3. ASPIRIN [Concomitant]
  4. EPTIFIBATIDE [Concomitant]
  5. GLIPIZIDE [Concomitant]
  6. LISINOPRIL [Concomitant]
  7. METOPROLOL SUCCINATE [Concomitant]
  8. MIRTAZAPINE [Concomitant]
  9. MORPHINE [Concomitant]
  10. NITROGLYCERIN [Concomitant]
  11. RANITIDINE [Concomitant]
  12. SIMVASTATIN [Concomitant]
  13. NACL 0.9%(DRIP) [Concomitant]

REACTIONS (1)
  - ELECTROCARDIOGRAM QT PROLONGED [None]
